FAERS Safety Report 13614939 (Version 4)
Quarter: 2017Q4

REPORT INFORMATION
  Report Type: Report from Study
  Country: GB (occurrence: GB)
  Receive Date: 20170606
  Receipt Date: 20171206
  Transmission Date: 20180320
  Serious: Yes (Other)
  Sender: FDA-Public Use
  Company Number: GB-JNJFOC-20170602984

PATIENT
  Age: 47 Year
  Sex: Male
  Weight: 68 kg

DRUGS (5)
  1. SIMPONI [Suspect]
     Active Substance: GOLIMUMAB
     Indication: PRODUCT USED FOR UNKNOWN INDICATION
     Route: 058
  2. AMISULPRIDE [Concomitant]
     Active Substance: AMISULPRIDE
     Indication: BIPOLAR DISORDER
     Route: 065
     Dates: start: 20130904
  3. NITRAZEPAM [Concomitant]
     Active Substance: NITRAZEPAM
     Indication: BIPOLAR DISORDER
     Route: 065
     Dates: start: 20130619
  4. ISOTRETINOIN. [Concomitant]
     Active Substance: ISOTRETINOIN
     Indication: ACNE
     Route: 065
     Dates: start: 20130525
  5. PANADOL [Concomitant]
     Active Substance: ACETAMINOPHEN
     Indication: BIPOLAR DISORDER
     Route: 065
     Dates: start: 20120629

REACTIONS (2)
  - Nasopharyngitis [Unknown]
  - Urinary tract infection [Unknown]

NARRATIVE: CASE EVENT DATE: 20170517
